FAERS Safety Report 15935596 (Version 1)
Quarter: 2019Q1

REPORT INFORMATION
  Report Type: Spontaneous
  Country: PT (occurrence: PT)
  Receive Date: 20190208
  Receipt Date: 20190208
  Transmission Date: 20190417
  Serious: Yes (Disabling)
  Sender: FDA-Public Use
  Company Number: PT-ACCORD-106329

PATIENT
  Age: 74 Year
  Sex: Female

DRUGS (1)
  1. ANASTROZOL ACCORD [Suspect]
     Active Substance: ANASTROZOLE
     Indication: BREAST CANCER
     Route: 048
     Dates: start: 20160630, end: 20160930

REACTIONS (2)
  - Product substitution issue [Unknown]
  - Arthralgia [Recovered/Resolved]

NARRATIVE: CASE EVENT DATE: 20160630
